FAERS Safety Report 11523383 (Version 1)
Quarter: 2015Q3

REPORT INFORMATION
  Report Type: Spontaneous
  Country: US (occurrence: US)
  Receive Date: 20150903
  Receipt Date: 20150903
  Transmission Date: 20151125
  Serious: No
  Sender: FDA-Public Use
  Company Number: US-ELI_LILLY_AND_COMPANY-US201003003192

PATIENT
  Sex: Female

DRUGS (5)
  1. LANTUS [Concomitant]
     Active Substance: INSULIN GLARGINE
  2. ANTIHYPERTENSIVES [Concomitant]
     Active Substance: UNSPECIFIED INGREDIENT
  3. BABY ASPIRIN [Concomitant]
     Active Substance: ASPIRIN
  4. HUMALOG [Suspect]
     Active Substance: INSULIN LISPRO
  5. HUMALOG [Suspect]
     Active Substance: INSULIN LISPRO
     Indication: DIABETES MELLITUS
     Dosage: UNK, AS NEEDED
     Dates: start: 2005

REACTIONS (1)
  - Drug dispensing error [Unknown]
